FAERS Safety Report 21185491 (Version 1)
Quarter: 2022Q3

REPORT INFORMATION
  Report Type: Spontaneous
  Country: US (occurrence: US)
  Receive Date: 20220808
  Receipt Date: 20220808
  Transmission Date: 20221026
  Serious: No
  Sender: FDA-Public Use
  Company Number: US-BRISTOL-MYERS SQUIBB COMPANY-2022-086601

PATIENT
  Age: 85 Year
  Weight: 63.5 kg

DRUGS (1)
  1. REVLIMID [Suspect]
     Active Substance: LENALIDOMIDE
     Indication: Plasma cell myeloma
     Dosage: FREQ:1 CAPSULE DAY 1-21 AND 7 DAYS OFF, THEN REPEAT
     Route: 048
     Dates: start: 20201001

REACTIONS (1)
  - Urinary tract infection bacterial [Unknown]
